FAERS Safety Report 10258274 (Version 1)
Quarter: 2014Q2

REPORT INFORMATION
  Report Type: Spontaneous
  Country: US (occurrence: US)
  Receive Date: 20140625
  Receipt Date: 20140625
  Transmission Date: 20141212
  Serious: No
  Sender: FDA-Public Use
  Company Number: US-AMGEN INC.-USASP2014047465

PATIENT
  Age: 48 Year
  Sex: Male
  Weight: 92.97 kg

DRUGS (2)
  1. ENBREL [Suspect]
     Indication: PRODUCT USED FOR UNKNOWN INDICATION
     Dosage: 50 MG/ML, 2 TIMES/WK
     Route: 058
  2. ADVIL                              /00109201/ [Concomitant]
     Dosage: 200 MG, UNK

REACTIONS (1)
  - Drug ineffective [Unknown]
